FAERS Safety Report 11922365 (Version 1)
Quarter: 2016Q1

REPORT INFORMATION
  Report Type: Spontaneous
  Country: NG (occurrence: NG)
  Receive Date: 20160115
  Receipt Date: 20160115
  Transmission Date: 20160526
  Serious: Yes (Death)
  Sender: FDA-Public Use
  Company Number: NG-PFIZER INC-2016008274

PATIENT
  Age: 28 Year
  Sex: Male
  Weight: 90 kg

DRUGS (7)
  1. TYGACIL [Suspect]
     Active Substance: TIGECYCLINE
     Indication: THERMAL BURN
     Dosage: 100 MG, SINGLE
     Route: 042
     Dates: start: 20160106
  2. TYGACIL [Suspect]
     Active Substance: TIGECYCLINE
     Indication: SEPSIS
  3. AMIKACIN [Concomitant]
     Active Substance: AMIKACIN
     Indication: SEPSIS
  4. AMIKACIN [Concomitant]
     Active Substance: AMIKACIN
     Indication: THERMAL BURN
     Dosage: 500 MG, 3X/DAY
     Route: 042
     Dates: start: 20160103
  5. MERONEM [Concomitant]
     Active Substance: MEROPENEM
     Indication: THERMAL BURN
     Dosage: 1 G, 3X/DAY
     Route: 042
     Dates: start: 20151228
  6. MERONEM [Concomitant]
     Active Substance: MEROPENEM
     Indication: SEPSIS
  7. CLEXANE [Concomitant]
     Active Substance: ENOXAPARIN SODIUM
     Indication: THROMBOSIS PROPHYLAXIS
     Dosage: 40 MG, 2X/DAY
     Route: 058
     Dates: start: 20151220

REACTIONS (2)
  - Thrombocytopenia [Fatal]
  - Gastroenteritis [Fatal]

NARRATIVE: CASE EVENT DATE: 201601
